FAERS Safety Report 21193293 (Version 1)
Quarter: 2022Q3

REPORT INFORMATION
  Report Type: Spontaneous
  Country: None (occurrence: US)
  Receive Date: 20220810
  Receipt Date: 20220810
  Transmission Date: 20221026
  Serious: Yes (Other)
  Sender: FDA-Public Use
  Company Number: US-Jiangsu Hengrui Medicine Co., Ltd.-2131673

PATIENT
  Age: 76 Year
  Sex: Male

DRUGS (13)
  1. DEXMEDETOMIDINE HYDROCHLORIDE [Suspect]
     Active Substance: DEXMEDETOMIDINE HYDROCHLORIDE
     Indication: Sedation
  2. NEOSTIGMINE. [Suspect]
     Active Substance: NEOSTIGMINE METHYLSULFATE
     Route: 041
  3. FENTANYL [Suspect]
     Active Substance: FENTANYL
  4. OXYCODONE. [Suspect]
     Active Substance: OXYCODONE HYDROCHLORIDE
     Route: 048
  5. CLONIDINE [Suspect]
     Active Substance: CLONIDINE
  6. PROPOFOL [Concomitant]
     Active Substance: PROPOFOL
  7. GABAPENTIN [Concomitant]
     Active Substance: GABAPENTIN
  8. ACETAMINOPHEN [Concomitant]
     Active Substance: ACETAMINOPHEN
  9. DOCUSATE [Concomitant]
     Active Substance: DOCUSATE
  10. SENNA [Concomitant]
     Active Substance: SENNA LEAF\SENNOSIDES\SENNOSIDES A AND B
  11. POLYETHYLENE GLYCOL [Concomitant]
     Active Substance: POLYETHYLENE GLYCOL
  12. BISACODYL [Concomitant]
     Active Substance: BISACODYL
  13. METOCLOPRAMIDE [Concomitant]
     Active Substance: METOCLOPRAMIDE

REACTIONS (3)
  - Cardiac arrest [Recovered/Resolved]
  - Bradycardia [Recovered/Resolved]
  - Intestinal pseudo-obstruction [Recovered/Resolved]
